FAERS Safety Report 10066702 (Version 2)
Quarter: 2015Q1

REPORT INFORMATION
  Report Type: Spontaneous
  Country: US (occurrence: None)
  Receive Date: 20140401
  Receipt Date: 20150331
  Transmission Date: 20150720
  Serious: Yes (Other)
  Sender: FDA-Public Use
  Company Number: PHEH2013US024440

PATIENT
  Age: 66 Year
  Sex: Female

DRUGS (6)
  1. AMLODIPINE [Concomitant]
     Active Substance: AMLODIPINE BESYLATE
  2. EXELON PATCH [Suspect]
     Active Substance: RIVASTIGMINE
     Indication: PARKINSON^S DISEASE
     Route: 062
  3. CARBIDOPA/LEVODOPA ER (CARBIDOPA, LEVODOPA) [Concomitant]
  4. VESICARE [Concomitant]
     Active Substance: SOLIFENACIN SUCCINATE
  5. CARBIDOPA LEVODOPA (CARBIDOPA, LEVODOPA) [Concomitant]
  6. NIFEDIPINE. [Concomitant]
     Active Substance: NIFEDIPINE

REACTIONS (5)
  - Malaise [None]
  - Nausea [None]
  - Orthostatic hypotension [None]
  - Hallucination [None]
  - Urinary tract infection [None]
